FAERS Safety Report 6030237-X (Version None)
Quarter: 2009Q1

REPORT INFORMATION
  Report Type: 
  Country: None (occurrence: None)
  Receive Date: 20090105
  Receipt Date: 20090105
  Transmission Date: 20090719
  Serious: No
  Sender: FDA-Public Use
  Company Number: None

PATIENT
  Age: 65 Year
  Sex: Female
  Weight: 71.2147 kg

DRUGS (1)
  1. LEVAQUIN [Suspect]
     Indication: SINUSITIS
     Dosage: 500MG'S 1 A DAY PO
     Route: 048
     Dates: start: 20081118, end: 20081202

REACTIONS (8)
  - ERYTHEMA [None]
  - FEELING HOT [None]
  - JAW DISORDER [None]
  - MOVEMENT DISORDER [None]
  - MUSCULOSKELETAL PAIN [None]
  - NERVE INJURY [None]
  - PAIN [None]
  - PAIN IN EXTREMITY [None]
